FAERS Safety Report 13366202 (Version 2)
Quarter: 2017Q2

REPORT INFORMATION
  Report Type: Spontaneous
  Country: US (occurrence: US)
  Receive Date: 20170323
  Receipt Date: 20170628
  Transmission Date: 20170830
  Serious: Yes (Other)
  Sender: FDA-Public Use
  Company Number: PHEH2017US008554

PATIENT
  Age: 73 Year
  Sex: Female
  Weight: 45.81 kg

DRUGS (3)
  1. GLEEVEC [Suspect]
     Active Substance: IMATINIB MESYLATE
     Indication: GASTROINTESTINAL STROMAL TUMOUR
     Dosage: 400 MG, QD
     Route: 048
  2. INSULIN [Concomitant]
     Active Substance: INSULIN NOS
     Indication: DIABETES MELLITUS
     Dosage: UNK
     Route: 065
  3. SUTENT [Suspect]
     Active Substance: SUNITINIB MALATE
     Indication: GASTROINTESTINAL STROMAL TUMOUR
     Dosage: 37.5 MG, QD
     Route: 065
     Dates: start: 20170413, end: 20170503

REACTIONS (15)
  - Skin reaction [Unknown]
  - Skeletal injury [Unknown]
  - Dry skin [Not Recovered/Not Resolved]
  - Inflammation [Unknown]
  - Skin fissures [Not Recovered/Not Resolved]
  - Skin ulcer [Not Recovered/Not Resolved]
  - Infection [Unknown]
  - Oral pain [Recovering/Resolving]
  - Recurrent cancer [Unknown]
  - Erythema [Not Recovered/Not Resolved]
  - Gingival pain [Recovering/Resolving]
  - Gastrointestinal stromal tumour [Unknown]
  - Asthenia [Not Recovered/Not Resolved]
  - Fatigue [Not Recovered/Not Resolved]
  - Pain in extremity [Not Recovered/Not Resolved]

NARRATIVE: CASE EVENT DATE: 201704
